FAERS Safety Report 8099646-1 (Version None)
Quarter: 2012Q1

REPORT INFORMATION
  Report Type: 
  Country: None (occurrence: None)
  Receive Date: 20120129
  Receipt Date: 20111007
  Transmission Date: 20120608
  Serious: No
  Sender: FDA-Public Use
  Company Number: US-ABBOTT-11P-163-0862232-00

PATIENT
  Age: 9 Year
  Sex: Female

DRUGS (2)
  1. UNKNOWN CONCOMITANT MEDICATION(S) [Concomitant]
     Indication: PRODUCT USED FOR UNKNOWN INDICATION
  2. HUMIRA [Suspect]
     Indication: CROHN'S DISEASE
     Dates: start: 20110826

REACTIONS (1)
  - DRUG INEFFECTIVE [None]
